FAERS Safety Report 5980255-2 (Version None)
Quarter: 2008Q4

REPORT INFORMATION
  Report Type: 
  Country: None (occurrence: None)
  Receive Date: 20081205
  Receipt Date: 20081125
  Transmission Date: 20090506
  Serious: Yes (Disabling)
  Sender: FDA-Public Use
  Company Number: GB-AMGEN-UK313822

PATIENT
  Sex: Female
  Weight: 87.6 kg

DRUGS (7)
  1. NEULASTA [Suspect]
     Indication: DRUG USE FOR UNKNOWN INDICATION
     Route: 065
     Dates: start: 20080614
  2. CYCLOPHOSPHAMIDE [Suspect]
     Route: 042
     Dates: start: 20080614
  3. FLUOROURACIL [Suspect]
     Route: 042
     Dates: start: 20080814
  4. METHOTREXATE [Suspect]
     Route: 042
     Dates: start: 20080814
  5. EPIRUBICIN [Concomitant]
     Dates: start: 20080612
  6. TINZAPARIN SODIUM [Concomitant]
     Route: 058
     Dates: start: 20080807
  7. AMOXICILLIN AND CLAVULANATE POTASSIUM [Concomitant]
     Dates: start: 20080801

REACTIONS (11)
  - BACK PAIN [None]
  - CONDUCTIVE DEAFNESS [None]
  - DEAFNESS [None]
  - DIARRHOEA [None]
  - GROIN ABSCESS [None]
  - INNER EAR DISORDER [None]
  - MASTOIDITIS [None]
  - NASOPHARYNGITIS [None]
  - NAUSEA [None]
  - OTITIS MEDIA [None]
  - RED BLOOD CELL COUNT DECREASED [None]
